FAERS Safety Report 8796430 (Version 2)
Quarter: 2012Q4

REPORT INFORMATION
  Report Type: 
  Country: US (occurrence: US)
  Receive Date: 20120919
  Receipt Date: 20120925
  Transmission Date: 20130627
  Serious: Yes (Death, Hospitalization)
  Sender: FDA-Public Use
  Company Number: US-GILEAD-2012-0061488

PATIENT
  Sex: Male

DRUGS (2)
  1. LETAIRIS [Suspect]
     Indication: PULMONARY HYPERTENSION
     Dosage: 10 mg, UNK
     Route: 048
     Dates: start: 20120801
  2. LETAIRIS [Suspect]
     Indication: SCLERODERMA

REACTIONS (7)
  - Pneumonia [Fatal]
  - Pleural effusion [Fatal]
  - Chronic obstructive pulmonary disease [Fatal]
  - Pulmonary arterial hypertension [Fatal]
  - Pulmonary fibrosis [Fatal]
  - Scleroderma [Unknown]
  - Dyspnoea [Unknown]
